FAERS Safety Report 16570471 (Version 1)
Quarter: 2019Q3

REPORT INFORMATION
  Report Type: Spontaneous
  Country: US (occurrence: US)
  Receive Date: 20190712
  Receipt Date: 20190712
  Transmission Date: 20191004
  Serious: Yes (Other)
  Sender: FDA-Public Use
  Company Number: None

PATIENT
  Age: 29 Year
  Sex: Female
  Weight: 77.11 kg

DRUGS (1)
  1. PARAGARD T 380A [Suspect]
     Active Substance: COPPER
     Dates: start: 20120409, end: 20190629

REACTIONS (5)
  - Unwanted pregnancy [None]
  - Maternal exposure during pregnancy [None]
  - Maternal exposure before pregnancy [None]
  - Treatment failure [None]
  - Foetal exposure during pregnancy [None]

NARRATIVE: CASE EVENT DATE: 20190628
